FAERS Safety Report 18991513 (Version 1)
Quarter: 2021Q1

REPORT INFORMATION
  Report Type: Report from Study
  Country: BE (occurrence: BE)
  Receive Date: 20210310
  Receipt Date: 20210310
  Transmission Date: 20210420
  Serious: Yes (Other)
  Sender: FDA-Public Use
  Company Number: BE-TEVA-2021-BE-1887957

PATIENT
  Age: 59 Year
  Sex: Female

DRUGS (1)
  1. COPAXONE [Suspect]
     Active Substance: GLATIRAMER ACETATE
     Indication: MULTIPLE SCLEROSIS
     Route: 065
     Dates: start: 20191002

REACTIONS (6)
  - Injection site necrosis [Not Recovered/Not Resolved]
  - Sensitive skin [Not Recovered/Not Resolved]
  - Injection site pain [Not Recovered/Not Resolved]
  - Burning sensation [Not Recovered/Not Resolved]
  - Injection site discolouration [Not Recovered/Not Resolved]
  - Poor quality product administered [Unknown]

NARRATIVE: CASE EVENT DATE: 202102
